FAERS Safety Report 5837588-X (Version None)
Quarter: 2008Q3

REPORT INFORMATION
  Report Type: 
  Country: None (occurrence: None)
  Receive Date: 20080807
  Receipt Date: 20080730
  Transmission Date: 20090109
  Serious: Yes (Other)
  Sender: FDA-Public Use
  Company Number: US-AMGEN-QUU296249

PATIENT
  Sex: Female
  Weight: 73.1 kg

DRUGS (9)
  1. KINERET [Suspect]
     Indication: RHEUMATOID ARTHRITIS
     Route: 058
     Dates: start: 20071015
  2. PREDNISONE TAB [Suspect]
  3. PREVACID [Concomitant]
  4. OSCAL [Concomitant]
  5. MULTI-VITAMINS [Concomitant]
  6. NAPROXEN [Concomitant]
  7. PROZAC [Concomitant]
  8. METHYTESTOSTERONE [Concomitant]
  9. CONJUGATED ESTROGENS [Concomitant]

REACTIONS (4)
  - BLINDNESS UNILATERAL [None]
  - INJECTION SITE ERYTHEMA [None]
  - INJECTION SITE IRRITATION [None]
  - PROCEDURAL COMPLICATION [None]
